FAERS Safety Report 9437301 (Version 1)
Quarter: 2013Q3

REPORT INFORMATION
  Report Type: Spontaneous
  Country: AU (occurrence: AU)
  Receive Date: 20130802
  Receipt Date: 20130802
  Transmission Date: 20140515
  Serious: Yes (Hospitalization)
  Sender: FDA-Public Use
  Company Number: AU-RANBAXY-2006US-01659

PATIENT
  Age: 28 Year
  Sex: Female

DRUGS (2)
  1. PARACETAMOL [Suspect]
     Indication: PRODUCT USED FOR UNKNOWN INDICATION
     Dosage: 35 G
     Route: 048
  2. ALCOHOL [Suspect]
     Indication: PRODUCT USED FOR UNKNOWN INDICATION
     Dosage: 400 ML
     Route: 048

REACTIONS (3)
  - Intentional overdose [Recovered/Resolved]
  - Alanine aminotransferase increased [Recovered/Resolved]
  - International normalised ratio increased [Recovered/Resolved]
